FAERS Safety Report 12958541 (Version 1)
Quarter: 2016Q4

REPORT INFORMATION
  Report Type: Spontaneous
  Country: US (occurrence: US)
  Receive Date: 20161121
  Receipt Date: 20161121
  Transmission Date: 20170207
  Serious: No
  Sender: FDA-Public Use
  Company Number: US-TEVA-629515USA

PATIENT
  Sex: Female
  Weight: 58.11 kg

DRUGS (1)
  1. DILTIAZEM. [Suspect]
     Active Substance: DILTIAZEM
     Indication: HEART RATE IRREGULAR
     Dates: start: 20160118

REACTIONS (6)
  - Wrong technique in product usage process [Unknown]
  - Throat irritation [Unknown]
  - Drug prescribing error [Unknown]
  - Feeling abnormal [Unknown]
  - Nausea [Unknown]
  - Blood pressure decreased [Unknown]
